FAERS Safety Report 4703671-5 (Version None)
Quarter: 2005Q2

REPORT INFORMATION
  Report Type: 
  Country: None (occurrence: None)
  Receive Date: 20050208
  Receipt Date: 20050208
  Transmission Date: 20051028
  Serious: Yes (Other)
  Sender: FDA-Public Use
  Company Number: None

PATIENT
  Sex: Female

DRUGS (1)
  1. TOFRANIL [Suspect]
     Indication: CHRONIC FATIGUE SYNDROME
     Dosage: THREE PO HS
     Route: 048
     Dates: start: 20040520

REACTIONS (1)
  - DRUG EFFECT DECREASED [None]
